FAERS Safety Report 4969742-3 (Version None)
Quarter: 2006Q2

REPORT INFORMATION
  Report Type: 
  Country: None (occurrence: None)
  Receive Date: 20060411
  Receipt Date: 20050113
  Transmission Date: 20061013
  Serious: Yes (Hospitalization)
  Sender: FDA-Public Use
  Company Number: US-MERCK-0501USA02251

PATIENT
  Age: 72 Year
  Sex: Male
  Weight: 97 kg

DRUGS (4)
  1. VIOXX [Suspect]
     Indication: GOUT
     Route: 048
     Dates: start: 20000301, end: 20021206
  2. VIOXX [Suspect]
     Route: 048
     Dates: start: 20021207, end: 20031201
  3. VIOXX [Suspect]
     Indication: ARTHRITIS
     Route: 048
     Dates: start: 20000301, end: 20021206
  4. VIOXX [Suspect]
     Route: 048
     Dates: start: 20021207, end: 20031201

REACTIONS (10)
  - ANGINA UNSTABLE [None]
  - ARTERIAL OCCLUSIVE DISEASE [None]
  - ARTERIOSCLEROSIS CORONARY ARTERY [None]
  - CATHETER SITE HAEMATOMA [None]
  - CORONARY ARTERY DISEASE [None]
  - ESSENTIAL HYPERTENSION [None]
  - GASTROOESOPHAGEAL REFLUX DISEASE [None]
  - HYPERLIPIDAEMIA [None]
  - MEDIAN NERVE INJURY [None]
  - STENT OCCLUSION [None]
